FAERS Safety Report 9319810 (Version 1)
Quarter: 2013Q2

REPORT INFORMATION
  Report Type: Spontaneous
  Country: US (occurrence: US)
  Receive Date: 20130530
  Receipt Date: 20130530
  Transmission Date: 20140414
  Serious: Yes (Hospitalization)
  Sender: FDA-Public Use
  Company Number: US-ASTRAZENECA-2013SE35791

PATIENT
  Age: 45 Year
  Sex: Male

DRUGS (5)
  1. BRILINTA [Suspect]
     Indication: ACUTE CORONARY SYNDROME
     Route: 048
     Dates: start: 2013, end: 2013
  2. BRILINTA [Suspect]
     Indication: ACUTE CORONARY SYNDROME
     Route: 048
     Dates: start: 2013, end: 2013
  3. ASPIRIN [Concomitant]
  4. UNSPECIFIED BETABLOCKER [Concomitant]
  5. UNSPECIFIED ACE INHIBITOR [Concomitant]

REACTIONS (1)
  - Gastrointestinal haemorrhage [Unknown]
